FAERS Safety Report 17849934 (Version 2)
Quarter: 2020Q2

REPORT INFORMATION
  Report Type: Spontaneous
  Country: US (occurrence: US)
  Receive Date: 20200602
  Receipt Date: 20200608
  Transmission Date: 20200714
  Serious: Yes (Death, Life-Threatening)
  Sender: FDA-Public Use
  Company Number: US-AXELLIA-003166

PATIENT
  Age: 55 Year
  Sex: Male
  Weight: 96 kg

DRUGS (2)
  1. VANCOMYCIN [Suspect]
     Active Substance: VANCOMYCIN
     Indication: INFECTION
     Dosage: STRENGTH 500X2 (1.0 GM)
     Route: 042
     Dates: start: 20200515, end: 20200515
  2. VENOFER [Concomitant]
     Active Substance: IRON SUCROSE
     Dosage: 100MG IVP

REACTIONS (4)
  - Unresponsive to stimuli [Unknown]
  - Burning sensation [Unknown]
  - Back pain [Unknown]
  - Death [Fatal]

NARRATIVE: CASE EVENT DATE: 20200515
